FAERS Safety Report 8399390-7 (Version None)
Quarter: 2012Q2

REPORT INFORMATION
  Report Type: 
  Country: None (occurrence: None)
  Receive Date: 20120531
  Receipt Date: 20120523
  Transmission Date: 20120825
  Serious: Yes (Hospitalization, Other)
  Sender: FDA-Public Use
  Company Number: US-JNJFOC-20120518471

PATIENT

DRUGS (1)
  1. INVEGA [Suspect]
     Indication: PRODUCT USED FOR UNKNOWN INDICATION
     Dosage: 6 MG IN THE MORNING AND 3 MG IN THE EVENING
     Route: 048

REACTIONS (3)
  - HEPATITIS C [None]
  - ALANINE AMINOTRANSFERASE INCREASED [None]
  - HOSPITALISATION [None]
